FAERS Safety Report 8738417 (Version 2)
Quarter: 2014Q1

REPORT INFORMATION
  Report Type: Spontaneous
  Country: US (occurrence: US)
  Receive Date: 20120823
  Receipt Date: 20140108
  Transmission Date: 20141002
  Serious: Yes (Disabling)
  Sender: FDA-Public Use
  Company Number: US-009507513-1208USA005561

PATIENT
  Sex: Male

DRUGS (1)
  1. PROPECIA [Suspect]
     Indication: ALOPECIA
     Dosage: 1 MG, UNK
     Route: 048
     Dates: start: 20090515

REACTIONS (15)
  - Anxiety [Not Recovered/Not Resolved]
  - Sexual dysfunction [Not Recovered/Not Resolved]
  - Genital disorder male [Unknown]
  - Penis disorder [Unknown]
  - Muscle atrophy [Unknown]
  - Fatigue [Unknown]
  - Middle insomnia [Unknown]
  - Prostatic disorder [Unknown]
  - Ejaculation disorder [Unknown]
  - Depression [Unknown]
  - Erectile dysfunction [Unknown]
  - Loss of libido [Unknown]
  - Ejaculation failure [Unknown]
  - Ejaculation disorder [Unknown]
  - Ejaculation disorder [Unknown]
